FAERS Safety Report 9284408 (Version 1)
Quarter: 2013Q2

REPORT INFORMATION
  Report Type: Spontaneous
  Country: IL (occurrence: IL)
  Receive Date: 20130510
  Receipt Date: 20130510
  Transmission Date: 20140414
  Serious: Yes (Other)
  Sender: FDA-Public Use
  Company Number: IL-UCBSA-085365

PATIENT
  Age: 14 Year
  Sex: Female

DRUGS (2)
  1. VIMPAT [Suspect]
     Indication: EPILEPSY
     Route: 048
     Dates: start: 2013, end: 201304
  2. VIMPAT [Suspect]
     Indication: EPILEPSY
     Route: 048
     Dates: start: 2013, end: 2013

REACTIONS (3)
  - Arrhythmia [Recovered/Resolved]
  - Atrial flutter [Recovered/Resolved]
  - Syncope [Recovered/Resolved]
